FAERS Safety Report 8997006 (Version 2)
Quarter: 2013Q1

REPORT INFORMATION
  Report Type: Spontaneous
  Country: JP (occurrence: JP)
  Receive Date: 20130104
  Receipt Date: 20130109
  Transmission Date: 20140127
  Serious: Yes (Other)
  Sender: FDA-Public Use
  Company Number: JP-PFIZER INC-2013001350

PATIENT
  Age: 47 Year
  Sex: Female

DRUGS (2)
  1. PACLITAXEL [Suspect]
     Indication: CERVIX CARCINOMA STAGE II
     Dosage: 175 MG/M2, ON DAY 1 WITH AN INTERVAL OF 3 WEEKS BETWEEN COURSES
     Route: 042
  2. CISPLATIN [Suspect]
     Indication: CERVIX CARCINOMA STAGE II
     Dosage: 50 MG/M2, ON DAY 1 WITH AN INTERVAL OF 3 WEEKS BETWEEN COURSES
     Route: 042

REACTIONS (4)
  - Oesophagitis [Unknown]
  - Leukopenia [Unknown]
  - Nausea [Unknown]
  - Vomiting [Unknown]
